FAERS Safety Report 7301635-9 (Version None)
Quarter: 2011Q1

REPORT INFORMATION
  Report Type: 
  Country: None (occurrence: None)
  Receive Date: 20110218
  Receipt Date: 20110207
  Transmission Date: 20110831
  Serious: Yes (Hospitalization)
  Sender: FDA-Public Use
  Company Number: FR-ACTELION-A-CH2011-44866

PATIENT
  Age: 77 Year
  Sex: Female

DRUGS (9)
  1. FLUCONAZOLE [Interacting]
     Dosage: UNK
     Dates: start: 20110106
  2. PREVISCAN [Concomitant]
  3. ALDACTONE [Concomitant]
     Dosage: UNK
     Dates: end: 20110207
  4. TRIATEC [Concomitant]
  5. TRACLEER [Suspect]
     Indication: PULMONARY HYPERTENSION
     Dosage: UNK , UNK
     Route: 048
     Dates: start: 20080901, end: 20110203
  6. FLUTICASONE PROPIONATE W/SALMETEROL XINAFOATE [Concomitant]
  7. FLECAINE [Concomitant]
  8. LASIX [Concomitant]
     Dosage: UNK
     Dates: end: 20110207
  9. PYOSTACINE [Concomitant]
     Dosage: UNK
     Dates: start: 20110106

REACTIONS (16)
  - ASPARTATE AMINOTRANSFERASE INCREASED [None]
  - CYTOLYTIC HEPATITIS [None]
  - BLOOD AMYLASE INCREASED [None]
  - ABDOMINAL PAIN UPPER [None]
  - ALANINE AMINOTRANSFERASE INCREASED [None]
  - BLOOD BILIRUBIN INCREASED [None]
  - HEPATOMEGALY [None]
  - GAMMA-GLUTAMYLTRANSFERASE INCREASED [None]
  - BLOOD CREATININE INCREASED [None]
  - CHOLESTASIS [None]
  - LIPASE INCREASED [None]
  - RENAL FAILURE [None]
  - JAUNDICE [None]
  - DRUG INTERACTION [None]
  - BILIRUBIN CONJUGATED INCREASED [None]
  - HYPERNATRAEMIA [None]
